FAERS Safety Report 10217221 (Version 1)
Quarter: 2014Q2

REPORT INFORMATION
  Report Type: Spontaneous
  Country: FR (occurrence: FR)
  Receive Date: 20140604
  Receipt Date: 20140604
  Transmission Date: 20141212
  Serious: Yes (Other)
  Sender: FDA-Public Use
  Company Number: FR-ACTAVIS-2014-12041

PATIENT
  Age: 71 Year
  Sex: Male

DRUGS (3)
  1. DOCETAXEL (UNKNOWN) [Suspect]
     Indication: PROSTATE CANCER
     Dosage: 161 MG, Q1H
     Route: 065
  2. ONDANSETRON [Suspect]
     Indication: PROSTATE CANCER
     Dosage: 8 MG, UNK
     Route: 042
  3. PROPANOLOL                         /00030001/ [Concomitant]
     Indication: PRODUCT USED FOR UNKNOWN INDICATION
     Dosage: UNKNOWN
     Route: 065

REACTIONS (5)
  - Neuropathy peripheral [Unknown]
  - Chest pain [Unknown]
  - Oedema peripheral [Unknown]
  - Nail toxicity [Unknown]
  - Priapism [Recovered/Resolved]
